FAERS Safety Report 6488072-4 (Version None)
Quarter: 2009Q4

REPORT INFORMATION
  Report Type: 
  Country: None (occurrence: None)
  Receive Date: 20091210
  Receipt Date: 20091125
  Transmission Date: 20100525
  Serious: Yes (Other)
  Sender: FDA-Public Use
  Company Number: JP-PFIZER INC-2009306652

PATIENT
  Age: 30 Year
  Sex: Female
  Weight: 53 kg

DRUGS (7)
  1. SILDENAFIL CITRATE [Suspect]
     Indication: PULMONARY ARTERIAL HYPERTENSION
     Dosage: 20 MG, 3X/DAY
     Route: 048
     Dates: start: 20080425
  2. ADALAT CC [Concomitant]
     Dosage: UNK
     Route: 048
     Dates: start: 20020701
  3. LASIX [Concomitant]
     Dosage: UNK
     Route: 048
     Dates: start: 20040401
  4. TORASEMIDE [Concomitant]
     Dosage: UNK
     Route: 048
     Dates: start: 20040401
  5. TRACLEER [Concomitant]
     Dosage: UNK
     Route: 048
     Dates: start: 20050811
  6. WARFARIN [Concomitant]
     Dosage: UNK
     Route: 048
     Dates: start: 20020701
  7. POLAPREZINC [Concomitant]
     Dosage: UNK
     Route: 048
     Dates: start: 20080605, end: 20090430

REACTIONS (1)
  - BLIGHTED OVUM [None]
